FAERS Safety Report 21968103 (Version 1)
Quarter: 2023Q1

REPORT INFORMATION
  Report Type: Spontaneous
  Country: US (occurrence: None)
  Receive Date: 20230207
  Receipt Date: 20230207
  Transmission Date: 20230417
  Serious: Yes (Hospitalization)
  Sender: FDA-Public Use
  Company Number: None

PATIENT
  Age: 58 Year
  Sex: Female
  Weight: 71.8 kg

DRUGS (17)
  1. YESCARTA [Suspect]
     Active Substance: AXICABTAGENE CILOLEUCEL
     Indication: B-cell lymphoma
     Dosage: OTHER FREQUENCY : ONCE;?
     Route: 041
     Dates: start: 20221222
  2. ACTEMRA [Concomitant]
     Active Substance: TOCILIZUMAB
     Dates: start: 20221226, end: 20221228
  3. anakinra (Kineret) [Concomitant]
     Dates: start: 20221226, end: 20230108
  4. dexAMETHasone (Decadron) injection [Concomitant]
     Dates: start: 20221224, end: 20230109
  5. levETIRAcetam (Keppra [Concomitant]
     Dates: start: 20221222, end: 20230207
  6. acyclovir (Zovirax [Concomitant]
     Dates: start: 20221222, end: 20230207
  7. acosamide (Vimpat [Concomitant]
     Dates: start: 20230101, end: 20230102
  8. siltuximab (Sylvant) [Concomitant]
     Dates: start: 20221228, end: 20221230
  9. ruxolitinib (Jakafi) tablet [Concomitant]
     Dates: start: 20221230, end: 20230106
  10. NOREPINEPHRINE [Concomitant]
     Active Substance: NOREPINEPHRINE
     Dates: start: 20221226, end: 20230103
  11. vasopressin (Vasostrict) [Concomitant]
     Dates: start: 20221228, end: 20221231
  12. PHENYLEPHRINE HCL [Concomitant]
     Active Substance: PHENYLEPHRINE HYDROCHLORIDE
     Dates: start: 20221228, end: 20230103
  13. cefepime (Maxipime) [Concomitant]
     Dates: start: 20221224, end: 20221228
  14. VANCOMYCIN [Concomitant]
     Active Substance: VANCOMYCIN
     Dates: start: 20221227, end: 20230103
  15. MEROPENEM [Concomitant]
     Active Substance: MEROPENEM
     Dates: start: 20221228, end: 20230103
  16. NOXAFIL [Concomitant]
     Active Substance: POSACONAZOLE
     Dates: start: 20221228, end: 20230111
  17. HYDROmorphone (Dilaudid) [Concomitant]
     Dates: start: 20221228, end: 20230123

REACTIONS (2)
  - Cytokine release syndrome [None]
  - Immune effector cell-associated neurotoxicity syndrome [None]

NARRATIVE: CASE EVENT DATE: 20221201
